FAERS Safety Report 14178438 (Version 1)
Quarter: 2017Q4

REPORT INFORMATION
  Report Type: Spontaneous
  Country: IN (occurrence: IN)
  Receive Date: 20171110
  Receipt Date: 20171110
  Transmission Date: 20180321
  Serious: Yes (Other)
  Sender: FDA-Public Use
  Company Number: IN-AMGEN-INDSP2017168832

PATIENT
  Age: 66 Year
  Sex: Male

DRUGS (1)
  1. VECTIBIX [Suspect]
     Active Substance: PANITUMUMAB
     Indication: COLORECTAL CANCER METASTATIC
     Dosage: 100 MG, UNK (4 VIALS)
     Route: 042
     Dates: start: 20170201, end: 201708

REACTIONS (5)
  - Hypoproteinaemia [Unknown]
  - General physical health deterioration [Unknown]
  - Colorectal cancer metastatic [Unknown]
  - Lung infection [Unknown]
  - Anaemia [Unknown]

NARRATIVE: CASE EVENT DATE: 2017
